FAERS Safety Report 4867810-8 (Version None)
Quarter: 2005Q4

REPORT INFORMATION
  Report Type: 
  Country: None (occurrence: None)
  Receive Date: 20051227
  Receipt Date: 20051227
  Transmission Date: 20060501
  Serious: No
  Sender: FDA-Public Use
  Company Number: None

PATIENT
  Sex: Female
  Weight: 69.4003 kg

DRUGS (2)
  1. FENTANYL [Suspect]
     Indication: HEADACHE
     Dosage: 50 MCG Q 2 D
     Dates: start: 20050718
  2. FENTANYL [Suspect]
     Indication: IRRITABLE BOWEL SYNDROME
     Dosage: 50 MCG Q 2 D
     Dates: start: 20050718

REACTIONS (3)
  - INSOMNIA [None]
  - PAIN [None]
  - PHARMACEUTICAL PRODUCT COMPLAINT [None]
